FAERS Safety Report 10370343 (Version 1)
Quarter: 2014Q1

REPORT INFORMATION
  Report Type: Spontaneous
  Country: US (occurrence: None)
  Receive Date: 20140306
  Receipt Date: 20140306
  Transmission Date: 20141002
  Serious: Yes (Other)
  Sender: FDA-Public Use
  Company Number: 163-21880-13071521

PATIENT
  Age: 71 Year
  Sex: Female
  Weight: 72.1 kg

DRUGS (5)
  1. REVLIMID (LENALIDOMIDE) (10 MILLIGRAM, CAPSULES) [Suspect]
     Indication: MYELODYSPLASTIC SYNDROME
     Dosage: 10 MG, 21 IN 28 D, PO
     Route: 048
     Dates: start: 20120714, end: 20130731
  2. PROCRIT (ERYTHROPOIETIN) [Concomitant]
  3. FOLIC ACID (FOLIC ACID) (TABLETS) [Concomitant]
  4. VITAMIN B12 (CYANOCOBALAMIN) (TABLETS) [Concomitant]
  5. METAMUCIL (METAMUCIL ^PROCTER + GAMBLE^) (CAPSULES) [Concomitant]

REACTIONS (2)
  - Haemoglobin decreased [None]
  - No therapeutic response [None]
